FAERS Safety Report 24565102 (Version 1)
Quarter: 2024Q4

REPORT INFORMATION
  Report Type: Spontaneous
  Country: US (occurrence: None)
  Receive Date: 20241029
  Receipt Date: 20241029
  Transmission Date: 20250114
  Serious: Yes (Hospitalization)
  Sender: Public
  Company Number: None

PATIENT
  Age: 15 Year
  Sex: Male

DRUGS (1)
  1. REBINYN [Suspect]
     Active Substance: COAGULATION FACTOR IX (RECOMBINANT), GLYCOPEGYLATED
     Indication: Factor IX deficiency
     Dosage: OTHER STRENGTH : 2000 UNITS;?OTHER QUANTITY : 2200 UNITS;?FREQUENCY : WEEKLY;?
     Route: 042
     Dates: start: 202304

REACTIONS (4)
  - Renal haemorrhage [None]
  - Joint injury [None]
  - Limb injury [None]
  - Haemorrhage [None]

NARRATIVE: CASE EVENT DATE: 20241026
